FAERS Safety Report 15387361 (Version 1)
Quarter: 2018Q3

REPORT INFORMATION
  Report Type: Report from Study
  Country: BR (occurrence: BR)
  Receive Date: 20180914
  Receipt Date: 20180914
  Transmission Date: 20181010
  Serious: Yes (Death)
  Sender: FDA-Public Use
  Company Number: BR-UCBSA-2017024961

PATIENT
  Age: 30 Year
  Sex: Male

DRUGS (2)
  1. TOPIRAMATE. [Concomitant]
     Active Substance: TOPIRAMATE
     Indication: EPILEPSY
  2. LEVETIRACETAM. [Suspect]
     Active Substance: LEVETIRACETAM
     Indication: EPILEPSY
     Dosage: 750 MG, 2X/DAY (BID)
     Route: 048
     Dates: start: 2015

REACTIONS (6)
  - Thyroid disorder [Unknown]
  - Weight decreased [Unknown]
  - Intentional product misuse [Unknown]
  - Aggression [Unknown]
  - Death [Fatal]
  - Seizure [Unknown]

NARRATIVE: CASE EVENT DATE: 20170603
